FAERS Safety Report 18695278 (Version 1)
Quarter: 2021Q1

REPORT INFORMATION
  Report Type: Spontaneous
  Country: US (occurrence: US)
  Receive Date: 20210104
  Receipt Date: 20210104
  Transmission Date: 20210419
  Serious: Yes (Death)
  Sender: FDA-Public Use
  Company Number: US-ABBVIE-21K-163-3714446-00

PATIENT
  Age: 45 Year
  Sex: Female

DRUGS (1)
  1. ISOFLURANE. [Suspect]
     Active Substance: ISOFLURANE
     Indication: PRODUCT USED FOR UNKNOWN INDICATION
     Route: 055

REACTIONS (4)
  - Cardiac arrest [Fatal]
  - Cardio-respiratory arrest [Fatal]
  - Respiratory arrest [Fatal]
  - Drug abuse [Fatal]
